FAERS Safety Report 6502231-3 (Version None)
Quarter: 2009Q4

REPORT INFORMATION
  Report Type: 
  Country: None (occurrence: None)
  Receive Date: 20091216
  Receipt Date: 20091022
  Transmission Date: 20100525
  Serious: No
  Sender: FDA-Public Use
  Company Number: PR-ABBOTT-09P-131-0600819-00

PATIENT
  Age: 50 Year
  Sex: Male

DRUGS (1)
  1. TRILIPIX [Suspect]
     Indication: HYPERTRIGLYCERIDAEMIA
     Route: 048
     Dates: start: 20091001, end: 20091005

REACTIONS (4)
  - ANAPHYLACTOID REACTION [None]
  - EAR DISORDER [None]
  - ERYTHEMA [None]
  - RASH GENERALISED [None]
